FAERS Safety Report 8910009 (Version 2)
Quarter: 2014Q1

REPORT INFORMATION
  Report Type: Spontaneous
  Country: US (occurrence: US)
  Receive Date: 20121115
  Receipt Date: 20140128
  Transmission Date: 20141002
  Serious: Yes (Hospitalization)
  Sender: FDA-Public Use
  Company Number: US-AMGEN-USASP2012071521

PATIENT
  Age: 38 Year
  Sex: Female

DRUGS (2)
  1. ENBREL [Suspect]
     Indication: RHEUMATOID ARTHRITIS
     Dosage: 50 MG, QWK
     Route: 065
     Dates: start: 20010912
  2. ENBREL [Suspect]
     Dosage: UNK
     Route: 065

REACTIONS (18)
  - Gastric ulcer haemorrhage [Recovered/Resolved]
  - Pulmonary thrombosis [Recovered/Resolved]
  - Unresponsive to stimuli [Recovered/Resolved]
  - Pneumonia [Recovered/Resolved]
  - Foot deformity [Recovered/Resolved]
  - Animal scratch [Recovered/Resolved]
  - Haemorrhage [Recovered/Resolved]
  - Carpal tunnel syndrome [Not Recovered/Not Resolved]
  - Neuropathy peripheral [Not Recovered/Not Resolved]
  - Pain [Not Recovered/Not Resolved]
  - Hypoaesthesia [Not Recovered/Not Resolved]
  - Local swelling [Not Recovered/Not Resolved]
  - Joint swelling [Not Recovered/Not Resolved]
  - Arthropod bite [Recovered/Resolved]
  - Finger deformity [Not Recovered/Not Resolved]
  - Asthenia [Recovered/Resolved]
  - Injection site pain [Not Recovered/Not Resolved]
  - Infected bites [Recovered/Resolved]
